FAERS Safety Report 24000788 (Version 1)
Quarter: 2024Q2

REPORT INFORMATION
  Report Type: Report from Study
  Country: PA (occurrence: None)
  Receive Date: 20240621
  Receipt Date: 20240621
  Transmission Date: 20240716
  Serious: Yes (Death, Disabling)
  Sender: FDA-Public Use
  Company Number: 2024A110390

PATIENT
  Age: 76 Year
  Sex: Male

DRUGS (1)
  1. CALQUENCE [Suspect]
     Active Substance: ACALABRUTINIB
     Indication: Mantle cell lymphoma
     Route: 048

REACTIONS (9)
  - Mobility decreased [Unknown]
  - Platelet count abnormal [Fatal]
  - Amnesia [Fatal]
  - Fatigue [Fatal]
  - Agitation [Fatal]
  - Hyperhidrosis [Fatal]
  - Feeling hot [Fatal]
  - Asthenia [Fatal]
  - Haemoglobin decreased [Fatal]
